FAERS Safety Report 13779665 (Version 4)
Quarter: 2017Q4

REPORT INFORMATION
  Report Type: Spontaneous
  Country: IT (occurrence: IT)
  Receive Date: 20170722
  Receipt Date: 20171025
  Transmission Date: 20180320
  Serious: Yes (Other)
  Sender: FDA-Public Use
  Company Number: IT-ROCHE-1965962

PATIENT
  Age: 73 Year
  Sex: Male
  Weight: 41.5 kg

DRUGS (8)
  1. ESBRIET [Suspect]
     Active Substance: PIRFENIDONE
     Indication: IDIOPATHIC PULMONARY FIBROSIS
     Dosage: HARD CAPSULE
     Route: 048
     Dates: start: 20170403
  2. CARDIOASPIRIN [Concomitant]
     Active Substance: ASPIRIN
  3. PARIET [Concomitant]
     Active Substance: RABEPRAZOLE SODIUM
  4. CIPRALEX [Concomitant]
     Active Substance: ESCITALOPRAM OXALATE
  5. CONGESCOR [Concomitant]
     Active Substance: BISOPROLOL
     Route: 065
  6. ATORVASTATIN [Concomitant]
     Active Substance: ATORVASTATIN
  7. BRETARIS GENUAIR [Concomitant]
     Active Substance: ACLIDINIUM BROMIDE
  8. ABSORCOL [Concomitant]

REACTIONS (3)
  - Cachexia [Recovering/Resolving]
  - Weight decreased [Recovering/Resolving]
  - Decreased appetite [Recovering/Resolving]

NARRATIVE: CASE EVENT DATE: 20170609
